FAERS Safety Report 14121850 (Version 2)
Quarter: 2018Q2

REPORT INFORMATION
  Report Type: Spontaneous
  Country: IT (occurrence: IT)
  Receive Date: 20171024
  Receipt Date: 20180402
  Transmission Date: 20180711
  Serious: Yes (Other)
  Sender: FDA-Public Use
  Company Number: IT-ABBVIE-17P-083-2141495-00

PATIENT
  Age: 32 Year
  Sex: Female

DRUGS (5)
  1. VALPROIC ACID. [Suspect]
     Active Substance: VALPROIC ACID
     Indication: MAJOR DEPRESSION
     Route: 065
  2. MIRTAZAPINE. [Suspect]
     Active Substance: MIRTAZAPINE
     Indication: MAJOR DEPRESSION
     Route: 065
  3. SERTRALINE [Suspect]
     Active Substance: SERTRALINE HYDROCHLORIDE
     Indication: MAJOR DEPRESSION
     Route: 065
  4. MIRTAZAPINE. [Suspect]
     Active Substance: MIRTAZAPINE
     Route: 065
  5. LORAZEPAM. [Suspect]
     Active Substance: LORAZEPAM
     Indication: MAJOR DEPRESSION
     Route: 065

REACTIONS (9)
  - Nightmare [Recovering/Resolving]
  - Condition aggravated [Recovered/Resolved]
  - Drug withdrawal syndrome [Recovered/Resolved]
  - Panic attack [Recovered/Resolved]
  - Agitation [Recovered/Resolved]
  - Feeling abnormal [Recovered/Resolved]
  - Weight increased [Unknown]
  - Mood swings [Recovered/Resolved]
  - Depressed mood [Recovered/Resolved]
